FAERS Safety Report 7864743-X (Version None)
Quarter: 2011Q4

REPORT INFORMATION
  Report Type: 
  Country: None (occurrence: None)
  Receive Date: 20111028
  Receipt Date: 20111017
  Transmission Date: 20120403
  Serious: Yes (Hospitalization, Other)
  Sender: FDA-Public Use
  Company Number: ES-ELI_LILLY_AND_COMPANY-ES201110007401

PATIENT

DRUGS (2)
  1. GEMCITABINE HYDROCHLORIDE [Suspect]
     Indication: NON-SMALL CELL LUNG CANCER
     Dosage: 1.250 MG/M2, DAYS 1 AND 8 OF EVERY 21-DAY CYCLE
  2. VINORELBINE [Concomitant]
     Indication: NON-SMALL CELL LUNG CANCER
     Dosage: 60 MG/M2, DAYS 1 AND 8 OF EVERY 21-DAY CYCLE
     Route: 048

REACTIONS (1)
  - HOSPITALISATION [None]
